FAERS Safety Report 17052944 (Version 1)
Quarter: 2019Q4

REPORT INFORMATION
  Report Type: Spontaneous
  Country: US (occurrence: US)
  Receive Date: 20191021
  Receipt Date: 20191021
  Transmission Date: 20200122
  Serious: Yes (Other)
  Sender: FDA-Public Use
  Company Number: None

PATIENT
  Age: 64 Year
  Sex: Female
  Weight: 63.5 kg

DRUGS (5)
  1. MAGNESIUM [Concomitant]
     Active Substance: MAGNESIUM
  2. NP THYROID [Suspect]
     Active Substance: LEVOTHYROXINE\LIOTHYRONINE
     Indication: HYPOTHYROIDISM
     Dosage: ?          QUANTITY:2 DF DOSAGE FORM;?
     Route: 048
     Dates: start: 201807
  3. POTASSIUM [Concomitant]
     Active Substance: POTASSIUM
  4. ACETYL-L-CARNITINE [Concomitant]
  5. RIBOFLAVIN [Concomitant]
     Active Substance: RIBOFLAVIN

REACTIONS (6)
  - Product odour abnormal [None]
  - Nausea [None]
  - Arrhythmia [None]
  - Anaphylactic reaction [None]
  - Product quality issue [None]
  - Palpitations [None]

NARRATIVE: CASE EVENT DATE: 20191021
